FAERS Safety Report 10252224 (Version 1)
Quarter: 2014Q2

REPORT INFORMATION
  Report Type: Spontaneous
  Country: GB (occurrence: None)
  Receive Date: 20140619
  Receipt Date: 20140619
  Transmission Date: 20141212
  Serious: Yes (Other)
  Sender: FDA-Public Use
  Company Number: CL-571-2014

PATIENT
  Age: 48 Year
  Sex: Male

DRUGS (2)
  1. METRONIDAZOLE [Suspect]
     Indication: SEPSIS
     Dosage: UNK IV UNK TO UNK (AROUND 1 WEEK)
     Route: 042
  2. AMPHOTERICIN [Suspect]
     Indication: SEPSIS
     Dosage: UNK TO UNK (AROUND 1 WEEK)
     Route: 042

REACTIONS (5)
  - Hypersensitivity [None]
  - Skin exfoliation [None]
  - Stevens-Johnson syndrome [None]
  - Toxic epidermal necrolysis [None]
  - Renal failure [None]
